FAERS Safety Report 9766251 (Version 3)
Quarter: 2019Q2

REPORT INFORMATION
  Report Type: Spontaneous
  Country: US (occurrence: US)
  Receive Date: 20131217
  Receipt Date: 20190621
  Transmission Date: 20190711
  Serious: No
  Sender: FDA-Public Use
  Company Number: US-PFIZER INC-2013357686

PATIENT
  Age: 53 Year
  Sex: Male

DRUGS (2)
  1. RAPAMUNE [Suspect]
     Active Substance: SIROLIMUS
     Dosage: UNK (TAKE 3 TABLETS IN THE MORNING AND 2,TABLETS IN THE EVENING, DINNER TIME)
  2. RAPAMUNE [Suspect]
     Active Substance: SIROLIMUS
     Indication: IMMUNOSUPPRESSANT DRUG THERAPY
     Dosage: 5 MG, DAILY (TAKE 3 TABLETS IN AM AND 2 TABLETS IN PM)

REACTIONS (3)
  - Memory impairment [Unknown]
  - Product use issue [Unknown]
  - Off label use [Unknown]
